FAERS Safety Report 9227991 (Version 1)
Quarter: 2013Q1

REPORT INFORMATION
  Report Type: Spontaneous
  Country: US (occurrence: None)
  Receive Date: 20121023
  Receipt Date: 20121023
  Transmission Date: 20140127
  Serious: Yes (Other)
  Sender: FDA-Public Use
  Company Number: PHEH2012US007438

PATIENT
  Sex: Female

DRUGS (1)
  1. VIVELLE DOT (ESTRADIOL) TRANS-THERAPEUTIC-SYSTEM [Suspect]
     Dosage: 0.05 UNSPECIFIED UNIT, TRANSDERMAL?
     Route: 062
     Dates: start: 20120324

REACTIONS (3)
  - Depression [None]
  - Abdominal discomfort [None]
  - Menstrual disorder [None]
